FAERS Safety Report 25012839 (Version 1)
Quarter: 2025Q1

REPORT INFORMATION
  Report Type: Spontaneous
  Country: US (occurrence: None)
  Receive Date: 20250225
  Receipt Date: 20250225
  Transmission Date: 20250409
  Serious: Yes (Death)
  Sender: FDA-CTU
  Company Number: None

PATIENT
  Age: 82 Year
  Weight: 69.3 kg

DRUGS (11)
  1. PROMACTA [Suspect]
     Active Substance: ELTROMBOPAG OLAMINE
     Indication: Thrombocytopenia
     Dosage: FREQUENCY : DAILY;?
     Route: 048
     Dates: start: 20200312, end: 20250128
  2. ATORVASTATIN [Concomitant]
     Active Substance: ATORVASTATIN
  3. COMBIGAN [Concomitant]
     Active Substance: BRIMONIDINE TARTRATE\TIMOLOL MALEATE
  4. ALLOPURINOL [Concomitant]
     Active Substance: ALLOPURINOL
  5. CLONAZEPAM [Concomitant]
     Active Substance: CLONAZEPAM
  6. GEMFIBROZIL [Concomitant]
     Active Substance: GEMFIBROZIL
  7. MIRTAZAPINE [Concomitant]
     Active Substance: MIRTAZAPINE
  8. OMEPRAZOLE [Concomitant]
     Active Substance: OMEPRAZOLE
  9. QUETIAPINE [Concomitant]
     Active Substance: QUETIAPINE
  10. SERTRALINE [Concomitant]
     Active Substance: SERTRALINE HYDROCHLORIDE
  11. Tamsulosin, cholecalciferol [Concomitant]

REACTIONS (2)
  - Pneumonia [None]
  - Respiratory distress [None]

NARRATIVE: CASE EVENT DATE: 20250128
